FAERS Safety Report 8497430 (Version 3)
Quarter: 2013Q1

REPORT INFORMATION
  Report Type: Report from Study
  Country: DE (occurrence: DE)
  Receive Date: 20120406
  Receipt Date: 20130329
  Transmission Date: 20140127
  Serious: Yes (Hospitalization, Other)
  Sender: FDA-Public Use
  Company Number: DE-ASTELLAS-2012US003369

PATIENT
  Age: 73 Year
  Sex: Male

DRUGS (5)
  1. ERLOTINIB TABLET [Suspect]
     Indication: NON-SMALL CELL LUNG CANCER
     Dosage: 100 MG, UNKNOWN/D
     Route: 048
     Dates: start: 20110819, end: 20110919
  2. ERLOTINIB TABLET [Suspect]
     Dosage: 100 MG, UNKNOWN/D
     Route: 048
     Dates: start: 20110923, end: 20111004
  3. MCP [Suspect]
     Indication: PRODUCT USED FOR UNKNOWN INDICATION
     Dosage: 30 MG, BID
     Route: 048
     Dates: start: 201102
  4. MINOCYCLINE [Suspect]
     Indication: RASH
     Dosage: 100 MG, UNKNOWN/D
     Route: 048
     Dates: start: 20110906
  5. PANTOZAL [Concomitant]
     Indication: PRODUCT USED FOR UNKNOWN INDICATION
     Dosage: 40
     Route: 065

REACTIONS (10)
  - Incorrect dose administered [Unknown]
  - Leukocytosis [Unknown]
  - Anaemia [Unknown]
  - Renal failure acute [Unknown]
  - Rash [Unknown]
  - Diarrhoea [Recovered/Resolved]
  - Renal impairment [Recovered/Resolved]
  - Nausea [Recovered/Resolved]
  - Vomiting [Recovered/Resolved]
  - Diarrhoea [Recovered/Resolved]
